FAERS Safety Report 19998662 (Version 2)
Quarter: 2021Q4

REPORT INFORMATION
  Report Type: Spontaneous
  Country: US (occurrence: US)
  Receive Date: 20211027
  Receipt Date: 20211026
  Transmission Date: 20220303
  Serious: No
  Sender: FDA-Public Use
  Company Number: US-ROCHE-2687635

PATIENT
  Sex: Male

DRUGS (4)
  1. COTELLIC [Suspect]
     Active Substance: COBIMETINIB
     Indication: Malignant melanoma
     Dosage: ONGOING: NO
     Route: 048
     Dates: start: 20200905
  2. COTELLIC [Suspect]
     Active Substance: COBIMETINIB
     Dosage: DOSE REDUCED, ONGOING: YES. RESTARTED 2 DAYS AGO IN MONTH OF SEPTEMBER (EXACT DATE UNKNOWN)
     Route: 048
     Dates: start: 202009
  3. ZELBORAF [Suspect]
     Active Substance: VEMURAFENIB
     Indication: Product used for unknown indication
     Route: 065
  4. ZELBORAF [Suspect]
     Active Substance: VEMURAFENIB
     Dosage: DOSE REDUCED, ONGOING: YES. RESTARTED 2 DAYS AGO IN MONTH OF SEPTEMBER (EXACT DATE UNKNOWN)
     Route: 065
     Dates: start: 202009

REACTIONS (5)
  - Rash [Unknown]
  - Pyrexia [Unknown]
  - Fatigue [Unknown]
  - Oral mucosal blistering [Unknown]
  - Oropharyngeal blistering [Unknown]
